FAERS Safety Report 25433264 (Version 1)
Quarter: 2025Q2

REPORT INFORMATION
  Report Type: Spontaneous
  Country: BE (occurrence: BE)
  Receive Date: 20250613
  Receipt Date: 20250613
  Transmission Date: 20250717
  Serious: Yes (Other)
  Sender: DAIICHI
  Company Number: None

PATIENT
  Sex: Female

DRUGS (1)
  1. EDOXABAN TOSYLATE [Suspect]
     Active Substance: EDOXABAN TOSYLATE
     Indication: Atrial fibrillation
     Route: 065
     Dates: start: 20240324

REACTIONS (3)
  - Varices oesophageal [Unknown]
  - Varicose vein [Unknown]
  - Gastric varices [Unknown]

NARRATIVE: CASE EVENT DATE: 20241203
